FAERS Safety Report 6119809-1 (Version None)
Quarter: 2009Q1

REPORT INFORMATION
  Report Type: 
  Country: None (occurrence: None)
  Receive Date: 20090316
  Receipt Date: 20090305
  Transmission Date: 20090719
  Serious: Yes (Death, Life-Threatening, Other)
  Sender: FDA-Public Use
  Company Number: JP-WYE-H06957308

PATIENT
  Sex: Male

DRUGS (31)
  1. ANCARON [Suspect]
     Indication: VENTRICULAR TACHYCARDIA
     Dosage: INITIAL INFUSION OF 150 MG/DL AT RATE OF 8.3 ML/MIN
     Route: 042
     Dates: start: 20080521, end: 20080521
  2. ANCARON [Suspect]
     Dosage: LOADING INFUSION OF 1.50 MG/DL AT INFUSION RATE OF 33 ML/HR
     Route: 042
     Dates: start: 20080521, end: 20080521
  3. ANCARON [Suspect]
     Dosage: MAINTENANCE INFUSION OF 1.50 MG/DLAT RATE OF 17 ML/HR
     Route: 042
     Dates: start: 20080521, end: 20080523
  4. ANCARON [Suspect]
     Dosage: CONTINUOUS INFUSION OF 1.50 MG/DL AT RATE OF 17 ML/HR
     Route: 042
     Dates: start: 20080523, end: 20080525
  5. RENIVACE [Concomitant]
     Indication: CARDIAC FAILURE
     Route: 048
     Dates: start: 20080517, end: 20080609
  6. ASPIRIN [Concomitant]
     Indication: MYOCARDIAL INFARCTION
     Route: 048
     Dates: start: 19950101, end: 20080609
  7. MEVALOTIN [Concomitant]
     Indication: HYPERLIPIDAEMIA
     Route: 048
     Dates: start: 19950101, end: 20080609
  8. ZYRTEC [Concomitant]
     Indication: RASH
     Route: 048
     Dates: start: 20060101, end: 20080609
  9. ARTIST [Concomitant]
     Indication: CARDIAC FAILURE
     Dosage: 10-20 MG DAILY
     Route: 048
     Dates: start: 20080517, end: 20080609
  10. GLYBURIDE [Concomitant]
     Indication: DIABETES MELLITUS
     Route: 048
     Dates: start: 19950101, end: 20080603
  11. ACTOS [Concomitant]
     Indication: DIABETES MELLITUS
     Route: 048
     Dates: start: 20060101, end: 20080603
  12. BASEN [Concomitant]
     Indication: DIABETES MELLITUS
     Route: 048
     Dates: start: 20060101, end: 20080603
  13. LASIX [Concomitant]
     Indication: CARDIAC FAILURE
     Route: 048
     Dates: start: 20080602, end: 20080609
  14. ALDACTONE [Concomitant]
     Indication: DIABETES MELLITUS
     Route: 048
     Dates: start: 20080602, end: 20080609
  15. GLUCONSAN K [Concomitant]
     Indication: HYPOKALAEMIA
     Dosage: 2-4 MG TWICE DAILY
     Route: 048
     Dates: start: 20080605, end: 20080609
  16. XYLOCAIN [Concomitant]
     Indication: VENTRICULAR TACHYCARDIA
     Dates: start: 20080521, end: 20080521
  17. MAGNESIUM SULFATE [Concomitant]
     Indication: VENTRICULAR TACHYCARDIA
     Dates: start: 20080521, end: 20080521
  18. RASENAZOLIN [Concomitant]
     Indication: INFECTION
     Dates: start: 20080527, end: 20080608
  19. CEFTRIAXONE [Concomitant]
     Indication: INFECTION
     Dates: start: 20080609, end: 20080609
  20. MINOCYCLINE HYDROCHLORIDE [Concomitant]
     Indication: INFECTION
     Dates: start: 20080609, end: 20080609
  21. MEROPEN [Concomitant]
     Indication: INFECTION
     Dates: start: 20080609, end: 20080616
  22. ERYTHROCIN [Concomitant]
     Indication: INFECTION
     Dates: start: 20080609, end: 20080616
  23. NITROGLYCERIN [Concomitant]
     Indication: CARDIAC FAILURE
     Dosage: CONTINUOUS 0.5 MG - 1.5 MG/HR
     Dates: start: 20080606, end: 20080616
  24. HANP [Concomitant]
     Indication: CARDIAC FAILURE
     Dosage: CONTINUOUS 0.0125- 0.05 MCG/MIN/KG
     Dates: start: 20080606, end: 20080616
  25. SOL-MELCORT [Concomitant]
     Indication: LUNG DISORDER
     Dates: start: 20080606, end: 20080611
  26. HEPARIN [Concomitant]
     Indication: MYOCARDIAL INFARCTION
     Dosage: CONTINUOUS 500 UNITS/HR
     Dates: start: 20080609, end: 20080616
  27. PROPOFOL [Concomitant]
     Indication: SEDATION
     Dosage: CONTINUOUS 3-5 ML/HR
     Dates: start: 20080609, end: 20080611
  28. DORMICUM ^ROCHE^ [Concomitant]
     Indication: SEDATION
     Dosage: 3 MG/HR
     Dates: start: 20080610, end: 20080611
  29. HUMULIN R [Concomitant]
     Indication: DIABETES MELLITUS
     Dosage: 2-8 UNITS
     Route: 058
     Dates: start: 20080522, end: 20080610
  30. ANCARON [Suspect]
     Route: 048
     Dates: start: 20080524, end: 20080528
  31. ANCARON [Suspect]
     Route: 048
     Dates: start: 20080529, end: 20080609

REACTIONS (6)
  - BLOOD PRESSURE DECREASED [None]
  - CARDIAC FAILURE [None]
  - CONDITION AGGRAVATED [None]
  - LUNG DISORDER [None]
  - PHLEBITIS [None]
  - PNEUMONIA BACTERIAL [None]
